FAERS Safety Report 22249972 (Version 1)
Quarter: 2023Q2

REPORT INFORMATION
  Report Type: Report from Study
  Country: US (occurrence: US)
  Receive Date: 20230425
  Receipt Date: 20230425
  Transmission Date: 20230721
  Serious: Yes (Hospitalization, Other)
  Sender: FDA-Public Use
  Company Number: US-ABBVIE-4737204

PATIENT
  Sex: Female

DRUGS (3)
  1. HUMIRA [Suspect]
     Active Substance: ADALIMUMAB
     Indication: Product used for unknown indication
     Route: 058
  2. HUMIRA [Suspect]
     Active Substance: ADALIMUMAB
     Route: 058
  3. HUMIRA [Suspect]
     Active Substance: ADALIMUMAB
     Route: 058

REACTIONS (20)
  - Fistula [Recovered/Resolved]
  - Therapeutic product effect decreased [Unknown]
  - Off label use [Unknown]
  - Wrong technique in product usage process [Recovered/Resolved]
  - Injection site scar [Unknown]
  - Appendicectomy [Recovered/Resolved]
  - Intestinal obstruction [Recovered/Resolved]
  - Pain [Unknown]
  - Oral mucosal blistering [Recovered/Resolved]
  - Depression [Recovered/Resolved]
  - Malnutrition [Recovered/Resolved]
  - Illness [Unknown]
  - Unevaluable event [Unknown]
  - Visual impairment [Unknown]
  - Vitamin D deficiency [Unknown]
  - Infected fistula [Unknown]
  - Asthenia [Unknown]
  - Mobility decreased [Unknown]
  - Tenderness [Unknown]
  - Crohn^s disease [Unknown]
